FAERS Safety Report 7656197-3 (Version None)
Quarter: 2011Q3

REPORT INFORMATION
  Report Type: 
  Country: None (occurrence: None)
  Receive Date: 20110804
  Receipt Date: 20110729
  Transmission Date: 20111222
  Serious: Yes (Death)
  Sender: FDA-Public Use
  Company Number: DE-TEVA-288048GER

PATIENT
  Age: 74 Year
  Sex: Female
  Weight: 72 kg

DRUGS (2)
  1. BORTEZOMIB [Suspect]
     Indication: PLASMACYTOMA
     Dosage: 2.25 MILLIGRAM;
     Route: 042
     Dates: start: 20101220
  2. DEXAMETHASONE [Suspect]
     Indication: PLASMACYTOMA
     Dosage: 20 MILLIGRAM;
     Route: 048
     Dates: start: 20101220

REACTIONS (1)
  - STAPHYLOCOCCAL SEPSIS [None]
